FAERS Safety Report 5184199-8 (Version None)
Quarter: 2006Q4

REPORT INFORMATION
  Report Type: 
  Country: None (occurrence: None)
  Receive Date: 20061220
  Receipt Date: 20060216
  Transmission Date: 20070319
  Serious: No
  Sender: FDA-Public Use
  Company Number: US-GLAXOSMITHKLINE-A0593952A

PATIENT
  Age: 58 Year
  Sex: Male

DRUGS (2)
  1. NICODERM CQ [Suspect]
  2. ZYBAN [Concomitant]

REACTIONS (1)
  - INSOMNIA [None]
